FAERS Safety Report 5414071-7 (Version None)
Quarter: 2007Q3

REPORT INFORMATION
  Report Type: 
  Country: None (occurrence: None)
  Receive Date: 20070814
  Receipt Date: 20070802
  Transmission Date: 20080115
  Serious: Yes (Other)
  Sender: FDA-Public Use
  Company Number: GB-PFIZER INC-2007066069

PATIENT
  Age: 26 Year
  Sex: Female

DRUGS (4)
  1. CHAMPIX [Suspect]
     Route: 048
  2. PARACETAMOL [Concomitant]
  3. SERETIDE [Concomitant]
  4. SALBUTAMOL [Concomitant]

REACTIONS (2)
  - MUSCULOSKELETAL STIFFNESS [None]
  - SWOLLEN TONGUE [None]
